FAERS Safety Report 7556785-9 (Version None)
Quarter: 2011Q2

REPORT INFORMATION
  Report Type: 
  Country: None (occurrence: None)
  Receive Date: 20110620
  Receipt Date: 20110615
  Transmission Date: 20111010
  Serious: Yes (Other)
  Sender: FDA-Public Use
  Company Number: US-PFIZER INC-2011112066

PATIENT
  Sex: Female

DRUGS (2)
  1. CHANTIX [Suspect]
     Indication: SMOKING CESSATION THERAPY
     Dosage: 0.5 MG, UNK
     Route: 048
     Dates: start: 20110510, end: 20110501
  2. CHANTIX [Suspect]
     Dosage: UNK
     Route: 048
     Dates: start: 20110501, end: 20110524

REACTIONS (4)
  - IRRITABILITY [None]
  - AMNESIA [None]
  - CONFUSIONAL STATE [None]
  - DEPRESSION [None]
